FAERS Safety Report 12930159 (Version 2)
Quarter: 2016Q4

REPORT INFORMATION
  Report Type: Spontaneous
  Country: GB (occurrence: GB)
  Receive Date: 20161110
  Receipt Date: 20161223
  Transmission Date: 20170207
  Serious: Yes (Death, Life-Threatening, Hospitalization)
  Sender: FDA-Public Use
  Company Number: GB-009507513-1611GBR003620

PATIENT
  Age: 85 Year
  Sex: Female

DRUGS (9)
  1. BENDROFLUMETHIAZIDE [Concomitant]
     Active Substance: BENDROFLUMETHIAZIDE
     Indication: HYPERTENSION
     Dosage: 2.5 MG, QD
     Route: 048
     Dates: start: 20121012
  2. CARBIMAZOLE [Concomitant]
     Active Substance: CARBIMAZOLE
     Indication: HYPERTHYROIDISM
     Dosage: 10 MG, QD
     Dates: start: 20160412
  3. OXYCODONE [Concomitant]
     Active Substance: OXYCODONE
     Dosage: 20 MG, QD
     Route: 048
  4. ACYCLOVIR. [Concomitant]
     Active Substance: ACYCLOVIR
     Indication: RASH MACULO-PAPULAR
     Dosage: 300 MG, TID
     Route: 041
     Dates: start: 20160418
  5. SULFAMETHOXAZOLE (+) TRIMETHOPRIM [Concomitant]
     Active Substance: SULFAMETHOXAZOLE\TRIMETHOPRIM
     Indication: PRODUCT USED FOR UNKNOWN INDICATION
     Dosage: UNK
  6. NIFEDIPINE. [Concomitant]
     Active Substance: NIFEDIPINE
     Indication: ANGINA PECTORIS
     Dosage: UNK, QD, FORMULATION: TABLET
     Route: 048
     Dates: start: 20121012
  7. OXYCODONE [Concomitant]
     Active Substance: OXYCODONE
     Indication: ARTHRALGIA
     Dosage: 5 MG, QD
     Route: 048
  8. DEXAMETHASONE. [Suspect]
     Active Substance: DEXAMETHASONE
     Indication: PLASMA CELL MYELOMA
     Dosage: 20 MG, QD
     Route: 048
     Dates: start: 20160324
  9. REVLIMID [Suspect]
     Active Substance: LENALIDOMIDE
     Indication: PLASMA CELL MYELOMA
     Dosage: 25 MG, QD
     Route: 048
     Dates: start: 20160324

REACTIONS (3)
  - Pneumonia [Fatal]
  - Pneumonia [Recovered/Resolved with Sequelae]
  - Tremor [Not Recovered/Not Resolved]

NARRATIVE: CASE EVENT DATE: 20160324
